FAERS Safety Report 7304571-7 (Version None)
Quarter: 2011Q1

REPORT INFORMATION
  Report Type: 
  Country: None (occurrence: None)
  Receive Date: 20110222
  Receipt Date: 20101214
  Transmission Date: 20110831
  Serious: Yes (Other)
  Sender: FDA-Public Use
  Company Number: PHHY2010BR85728

PATIENT
  Age: 38 Year
  Sex: Male

DRUGS (6)
  1. HALDOL [Suspect]
     Indication: SCHIZOPHRENIA, PARANOID TYPE
     Dosage: 5 MG, UNK
  2. HALDOL [Suspect]
     Dosage: 10 MG, PRN
  3. BIPERIDEN HYDROCHLORIDE TAB [Suspect]
     Indication: SCHIZOPHRENIA, PARANOID TYPE
  4. OLCADIL [Suspect]
     Indication: SCHIZOPHRENIA, PARANOID TYPE
  5. CLOXAZOLAM [Suspect]
     Indication: SCHIZOPHRENIA, PARANOID TYPE
     Dosage: 4 MG, UNK
  6. TEGRETOL [Suspect]
     Indication: SCHIZOPHRENIA, PARANOID TYPE
     Dosage: UNK

REACTIONS (5)
  - DRUG RESISTANCE [None]
  - SCHIZOPHRENIA, PARANOID TYPE [None]
  - CONDITION AGGRAVATED [None]
  - AGGRESSION [None]
  - VOMITING [None]
